FAERS Safety Report 7225134-8 (Version None)
Quarter: 2011Q1

REPORT INFORMATION
  Report Type: 
  Country: None (occurrence: None)
  Receive Date: 20110113
  Receipt Date: 20110106
  Transmission Date: 20110831
  Serious: Yes (Hospitalization)
  Sender: FDA-Public Use
  Company Number: A0890884A

PATIENT
  Age: 79 Year
  Sex: Female

DRUGS (12)
  1. NITROGLYCERIN [Suspect]
     Indication: PRODUCT USED FOR UNKNOWN INDICATION
     Route: 062
  2. BUMETANIDE [Concomitant]
  3. DIGOXIN [Suspect]
     Indication: PRODUCT USED FOR UNKNOWN INDICATION
     Dosage: 125MCG UNKNOWN
     Route: 065
  4. VENTOLIN [Concomitant]
  5. OMEPRAZOLE [Concomitant]
  6. MULTIVITAMIN [Concomitant]
  7. COMBIVENT [Concomitant]
  8. ADVAIR HFA [Suspect]
     Indication: CHRONIC OBSTRUCTIVE PULMONARY DISEASE
     Dosage: 2PUFF TWICE PER DAY
     Route: 055
     Dates: start: 20090101
  9. AMIODARONE [Suspect]
     Indication: HEART RATE INCREASED
     Route: 065
  10. COZAAR [Suspect]
     Indication: PRODUCT USED FOR UNKNOWN INDICATION
     Route: 065
  11. ALBUTEROL [Concomitant]
  12. SIMVASTATIN [Concomitant]

REACTIONS (4)
  - ILL-DEFINED DISORDER [None]
  - OVERDOSE [None]
  - DYSPNOEA [None]
  - HEART RATE INCREASED [None]
